FAERS Safety Report 25075687 (Version 1)
Quarter: 2025Q1

REPORT INFORMATION
  Report Type: Spontaneous
  Country: EU (occurrence: None)
  Receive Date: 20250313
  Receipt Date: 20250313
  Transmission Date: 20250409
  Serious: Yes (Death, Hospitalization, Other)
  Sender: ETHYPHARM
  Company Number: None

PATIENT

DRUGS (3)
  1. BUPRENORPHINE HYDROCHLORIDE [Suspect]
     Active Substance: BUPRENORPHINE HYDROCHLORIDE
  2. CANNABIS SATIVA SUBSP. INDICA TOP [Suspect]
     Active Substance: CANNABIS SATIVA SUBSP. INDICA TOP
  3. COCAINE [Suspect]
     Active Substance: COCAINE

REACTIONS (3)
  - Substance use disorder [Unknown]
  - Disturbance in attention [Recovered/Resolved]
  - Dermo-hypodermitis [Fatal]

NARRATIVE: CASE EVENT DATE: 20241005
